FAERS Safety Report 12400727 (Version 2)
Quarter: 2016Q2

REPORT INFORMATION
  Report Type: Spontaneous
  Country: US (occurrence: US)
  Receive Date: 20160525
  Receipt Date: 20160525
  Transmission Date: 20160815
  Serious: No
  Sender: FDA-Public Use
  Company Number: US-SA-2015SA095361

PATIENT
  Age: 68 Year
  Sex: Female

DRUGS (4)
  1. SOLOSTAR [Suspect]
     Active Substance: DEVICE
     Indication: TYPE 2 DIABETES MELLITUS
     Dates: start: 20131102
  2. METFORMIN [Concomitant]
     Active Substance: METFORMIN HYDROCHLORIDE
  3. GLIPIZIDE. [Concomitant]
     Active Substance: GLIPIZIDE
  4. LANTUS SOLOSTAR [Suspect]
     Active Substance: INSULIN GLARGINE
     Indication: TYPE 2 DIABETES MELLITUS
     Dosage: DOSE:10 UNIT(S)
     Route: 065
     Dates: start: 20131102

REACTIONS (9)
  - Blood iron decreased [Unknown]
  - Depression [Unknown]
  - Hypoglycaemia [Unknown]
  - Visual acuity reduced [Unknown]
  - Weight fluctuation [Unknown]
  - Blood glucose increased [Unknown]
  - Dry eye [Unknown]
  - Glycosylated haemoglobin increased [Unknown]
  - Palpitations [Unknown]

NARRATIVE: CASE EVENT DATE: 201506
